FAERS Safety Report 4702184-4 (Version None)
Quarter: 2005Q2

REPORT INFORMATION
  Report Type: 
  Country: None (occurrence: None)
  Receive Date: 20050628
  Receipt Date: 20050628
  Transmission Date: 20051028
  Serious: Yes (Hospitalization)
  Sender: FDA-Public Use
  Company Number: None

PATIENT
  Age: 54 Year
  Sex: Male
  Weight: 93 kg

DRUGS (6)
  1. ROSUVASTATIN    10 MG    ASTRAZENECA [Suspect]
     Indication: DYSLIPIDAEMIA
     Dosage: 10 MG   DAILY   ORAL
     Route: 048
     Dates: start: 20050606, end: 20050619
  2. NIASPAN [Concomitant]
  3. LISINOPRIL [Concomitant]
  4. CITALOPRAM [Concomitant]
  5. AMINOPHYLLINE [Concomitant]
  6. FLUTICASONE/SALMETEROL DISKUS [Concomitant]

REACTIONS (1)
  - PANCREATITIS [None]
